FAERS Safety Report 17599794 (Version 2)
Quarter: 2020Q2

REPORT INFORMATION
  Report Type: Spontaneous
  Country: FR (occurrence: FR)
  Receive Date: 20200330
  Receipt Date: 20200416
  Transmission Date: 20200713
  Serious: Yes (Death)
  Sender: FDA-Public Use
  Company Number: FR-MYLANLABS-2020M1032443

PATIENT
  Age: 74 Year
  Sex: Male
  Weight: 80.5 kg

DRUGS (9)
  1. OXALIPLATIN. [Suspect]
     Active Substance: OXALIPLATIN
     Indication: PELVIC NEOPLASM
     Dosage: 165 MILLIGRAM, CYCLE
     Route: 041
     Dates: start: 20191120, end: 20200123
  2. HYDROCHLOROTHIAZIDE. [Suspect]
     Active Substance: HYDROCHLOROTHIAZIDE
     Indication: HYPERTENSION
     Dosage: 12.5 MILLIGRAM, QD
     Route: 048
     Dates: end: 20200210
  3. HYDROCHLOROTHIAZIDE. [Suspect]
     Active Substance: HYDROCHLOROTHIAZIDE
     Dosage: 12.5 MILLIGRAM, QD
     Route: 048
  4. VECTIBIX [Suspect]
     Active Substance: PANITUMUMAB
     Indication: PELVIC NEOPLASM
     Dosage: 6 MILLIGRAM/KILOGRAM, CYCLE
     Route: 041
     Dates: start: 20191225, end: 20200205
  5. FLUOROURACILE [Suspect]
     Active Substance: FLUOROURACIL
     Indication: PELVIC NEOPLASM
     Dosage: 5250 MILLIGRAM, CYCLE
     Route: 041
     Dates: start: 20191120, end: 20200207
  6. LEVOFOLINATE CALCIUM [Suspect]
     Active Substance: LEVOLEUCOVORIN CALCIUM
     Indication: PELVIC NEOPLASM
     Dosage: 360 MILLIGRAM, CYCLE
     Route: 042
     Dates: start: 20191120, end: 20200205
  7. BACTRIM [Suspect]
     Active Substance: SULFAMETHOXAZOLE\TRIMETHOPRIM
     Dosage: UNK
     Dates: start: 20200207
  8. VALSARTAN. [Suspect]
     Active Substance: VALSARTAN
     Indication: HYPERTENSION
     Dosage: 160 MILLIGRAM, QD
     Route: 048
     Dates: end: 20200213
  9. BACTRIM [Suspect]
     Active Substance: SULFAMETHOXAZOLE\TRIMETHOPRIM
     Indication: URINARY TRACT INFECTION
     Dosage: INCONNUE
     Route: 048
     Dates: start: 20200207, end: 20200210

REACTIONS (1)
  - Interstitial lung disease [Fatal]

NARRATIVE: CASE EVENT DATE: 20200210
